FAERS Safety Report 6371747-5 (Version None)
Quarter: 2009Q3

REPORT INFORMATION
  Report Type: 
  Country: None (occurrence: None)
  Receive Date: 20090923
  Receipt Date: 20090910
  Transmission Date: 20100115
  Serious: Yes (Death, Hospitalization)
  Sender: FDA-Public Use
  Company Number: AU-ROCHE-404419

PATIENT
  Sex: Male
  Weight: 65 kg

DRUGS (5)
  1. PEGASYS [Suspect]
     Route: 058
     Dates: start: 20041027, end: 20050122
  2. PEGASYS [Suspect]
     Dosage: DOSE: HALVED
     Route: 058
  3. RIBAVIRIN [Suspect]
     Route: 048
     Dates: start: 20041027, end: 20050122
  4. METHADONE [Concomitant]
     Dates: start: 19960101
  5. ACTONEL [Concomitant]
     Dates: start: 20040201

REACTIONS (6)
  - COLITIS [None]
  - HEPATIC FAILURE [None]
  - HYPONATRAEMIA [None]
  - METABOLIC ACIDOSIS [None]
  - MULTI-ORGAN FAILURE [None]
  - RENAL FAILURE [None]
